FAERS Safety Report 13805456 (Version 1)
Quarter: 2017Q3

REPORT INFORMATION
  Report Type: Spontaneous
  Country: US (occurrence: US)
  Receive Date: 20170728
  Receipt Date: 20170728
  Transmission Date: 20171127
  Serious: Yes (Other)
  Sender: FDA-Public Use
  Company Number: None

PATIENT
  Sex: Female

DRUGS (3)
  1. LAMICTAL [Suspect]
     Active Substance: LAMOTRIGINE
     Route: 048
  2. FORTEO [Suspect]
     Active Substance: TERIPARATIDE
     Indication: SENILE OSTEOPOROSIS
     Route: 058
  3. FORTEO [Suspect]
     Active Substance: TERIPARATIDE
     Indication: PATHOLOGICAL FRACTURE
     Route: 058

REACTIONS (5)
  - Gait disturbance [None]
  - Sensory disturbance [None]
  - Fall [None]
  - Head injury [None]
  - Dizziness [None]
